FAERS Safety Report 5759602-2 (Version None)
Quarter: 2008Q2

REPORT INFORMATION
  Report Type: 
  Country: None (occurrence: None)
  Receive Date: 20080605
  Receipt Date: 20080527
  Transmission Date: 20081010
  Serious: Yes (Death, Hospitalization)
  Sender: FDA-Public Use
  Company Number: IT-ELI_LILLY_AND_COMPANY-IT200805005231

PATIENT
  Sex: Male

DRUGS (1)
  1. GEMZAR [Suspect]
     Dosage: 1400 MG, DAILY (1/D)
     Route: 065
     Dates: start: 20080415, end: 20080415

REACTIONS (3)
  - BLOOD BILIRUBIN INCREASED [None]
  - PYREXIA [None]
  - TRANSAMINASES INCREASED [None]
